FAERS Safety Report 5991166-0 (Version None)
Quarter: 2008Q4

REPORT INFORMATION
  Report Type: 
  Country: None (occurrence: None)
  Receive Date: 20081202
  Receipt Date: 20080212
  Transmission Date: 20090506
  Serious: Yes (Other)
  Sender: FDA-Public Use
  Company Number: WAES 0802USA03119

PATIENT
  Age: 49 Year
  Sex: Female
  Weight: 88.905 kg

DRUGS (2)
  1. FOSAMAX [Suspect]
     Indication: OSTEOPOROSIS
     Dosage: 70 MG/PO
     Route: 048
     Dates: start: 20050901
  2. FOSAMAX [Suspect]
     Indication: OSTEOPOROSIS
     Dosage: 10 MG/WKY/PO
     Route: 048
     Dates: start: 20051122, end: 20060901

REACTIONS (8)
  - CHEST PAIN [None]
  - DENTAL CARIES [None]
  - HEADACHE [None]
  - ORAL DISORDER [None]
  - OSTEONECROSIS [None]
  - PAIN IN JAW [None]
  - RECTOCELE [None]
  - TRISMUS [None]
